FAERS Safety Report 9432679 (Version 1)
Quarter: 2013Q3

REPORT INFORMATION
  Report Type: Spontaneous
  Country: US (occurrence: US)
  Receive Date: 20130731
  Receipt Date: 20130731
  Transmission Date: 20140515
  Serious: Yes (Hospitalization)
  Sender: FDA-Public Use
  Company Number: US-TEVA-421555USA

PATIENT
  Age: 59 Year
  Sex: Female
  Weight: 99.88 kg

DRUGS (19)
  1. PROAIR HFA [Suspect]
     Indication: ASTHMA
     Dosage: 2 PUFFS
  2. ADVAIR [Concomitant]
     Indication: ASTHMA
  3. ALLERGY SHOTS [Concomitant]
     Indication: HYPERSENSITIVITY
  4. ACTOS [Concomitant]
     Indication: DIABETES MELLITUS
  5. BENAZEPRIL [Concomitant]
     Indication: HYPERTENSION
  6. FLUTICASONE [Concomitant]
     Indication: HYPERSENSITIVITY
  7. HYDROCHLOROTHIAZIDE [Concomitant]
  8. LANTUS [Concomitant]
     Indication: DIABETES MELLITUS
  9. LIPITOR [Concomitant]
     Indication: BLOOD CHOLESTEROL
  10. NEXIUM [Concomitant]
     Indication: GASTROOESOPHAGEAL REFLUX DISEASE
  11. ONGLYZA [Concomitant]
     Indication: DIABETES MELLITUS
  12. VESICARE [Concomitant]
     Indication: BLADDER DYSFUNCTION
  13. ZOLOFT [Concomitant]
     Indication: DEPRESSION
  14. ZYRTEC [Concomitant]
     Indication: HYPERSENSITIVITY
  15. MULTIVITAMIN [Concomitant]
     Indication: MEDICAL DIET
  16. GLUCOSAMINE W/CHONDROITIN SULFATE [Concomitant]
     Indication: MEDICAL DIET
  17. VITAMIN D NOS [Concomitant]
     Indication: MEDICAL DIET
  18. CALCIUM [Concomitant]
     Indication: MEDICAL DIET
  19. VITAMIN C [Concomitant]
     Indication: MEDICAL DIET

REACTIONS (1)
  - Knee arthroplasty [Recovered/Resolved]
